FAERS Safety Report 20336534 (Version 1)
Quarter: 2022Q1

REPORT INFORMATION
  Report Type: Report from Study
  Country: CR (occurrence: CR)
  Receive Date: 20220114
  Receipt Date: 20220114
  Transmission Date: 20220423
  Serious: Yes (Life-Threatening)
  Sender: FDA-Public Use
  Company Number: CR-NOVARTISPH-NVSC2021CR241778

PATIENT
  Sex: Female

DRUGS (2)
  1. SECUKINUMAB [Suspect]
     Active Substance: SECUKINUMAB
     Indication: Psoriasis
     Dosage: 300 MG, QMO
     Route: 058
     Dates: start: 20190305, end: 20210809
  2. SECUKINUMAB [Suspect]
     Active Substance: SECUKINUMAB
     Dosage: 300 MG, QMO
     Route: 058
     Dates: start: 20190312

REACTIONS (8)
  - Malaise [Unknown]
  - Anxiety [Unknown]
  - Skin disorder [Unknown]
  - Condition aggravated [Not Recovered/Not Resolved]
  - Burning sensation [Not Recovered/Not Resolved]
  - Fatigue [Recovered/Resolved]
  - Mental disorder [Unknown]
  - Pain [Unknown]
